FAERS Safety Report 13009853 (Version 1)
Quarter: 2016Q4

REPORT INFORMATION
  Report Type: Spontaneous
  Country: US (occurrence: US)
  Receive Date: 20161208
  Receipt Date: 20161208
  Transmission Date: 20170207
  Serious: No
  Sender: FDA-Public Use
  Company Number: GXBR2016US003488

PATIENT
  Sex: Female

DRUGS (2)
  1. CLOTRIMAZOLE AND BETAMETHASONE [Suspect]
     Active Substance: BETAMETHASONE\CLOTRIMAZOLE
     Indication: SKIN IRRITATION
     Dosage: 1 %, BID
     Route: 061
     Dates: start: 20161119, end: 20161128
  2. CLOTRIMAZOLE AND BETAMETHASONE [Suspect]
     Active Substance: BETAMETHASONE\CLOTRIMAZOLE
     Indication: BREAST PAIN

REACTIONS (3)
  - Application site pain [Not Recovered/Not Resolved]
  - Application site erythema [Not Recovered/Not Resolved]
  - Application site rash [Not Recovered/Not Resolved]

NARRATIVE: CASE EVENT DATE: 20161128
